FAERS Safety Report 8509060-X (Version None)
Quarter: 2012Q3

REPORT INFORMATION
  Report Type: 
  Country: None (occurrence: None)
  Receive Date: 20120703
  Receipt Date: 20120611
  Transmission Date: 20120928
  Serious: Yes (Other)
  Sender: FDA-Public Use
  Company Number: ES-2012-2365

PATIENT

DRUGS (3)
  1. BEVACIZUMAB [Concomitant]
  2. NAVELBINE [Suspect]
     Indication: PRODUCT USED FOR UNKNOWN INDICATION
     Dosage: 25 MG/M2 IV
     Route: 042
  3. CISPLATIN [Concomitant]

REACTIONS (1)
  - HAEMOPTYSIS [None]
